FAERS Safety Report 4664458-5 (Version None)
Quarter: 2005Q2

REPORT INFORMATION
  Report Type: 
  Country: None (occurrence: None)
  Receive Date: 20050518
  Receipt Date: 20050228
  Transmission Date: 20051028
  Serious: Yes (Life-Threatening)
  Sender: FDA-Public Use
  Company Number: 200510662JP

PATIENT
  Age: 62 Year
  Sex: Male
  Weight: 70 kg

DRUGS (3)
  1. ALLEGRA [Suspect]
     Indication: SEASONAL ALLERGY
     Route: 048
     Dates: end: 20050221
  2. BLOPRESS [Suspect]
     Indication: HYPERTENSION
     Route: 048
     Dates: end: 20050221
  3. CHINESE HERBAL MEDICINE [Concomitant]
     Route: 048
     Dates: end: 20050221

REACTIONS (8)
  - AORTIC DISSECTION [None]
  - CONVULSION [None]
  - DEPRESSED LEVEL OF CONSCIOUSNESS [None]
  - FALL [None]
  - HEMIPLEGIA [None]
  - HYPOTENSION [None]
  - PHOTOPSIA [None]
  - RESTLESSNESS [None]
